FAERS Safety Report 24884508 (Version 2)
Quarter: 2025Q1

REPORT INFORMATION
  Report Type: Spontaneous
  Country: HR (occurrence: HR)
  Receive Date: 20250124
  Receipt Date: 20250218
  Transmission Date: 20250409
  Serious: Yes (Other)
  Sender: ABBVIE
  Company Number: HR-ABBVIE-6096549

PATIENT
  Age: 25 Year
  Sex: Male

DRUGS (1)
  1. RINVOQ [Suspect]
     Active Substance: UPADACITINIB
     Indication: Colitis ulcerative
     Route: 048
     Dates: start: 20241209, end: 20250125

REACTIONS (2)
  - Epilepsy [Unknown]
  - Glioneuronal tumour [Unknown]

NARRATIVE: CASE EVENT DATE: 20250101
